FAERS Safety Report 6553651-2 (Version None)
Quarter: 2010Q1

REPORT INFORMATION
  Report Type: 
  Country: None (occurrence: None)
  Receive Date: 20100127
  Receipt Date: 20100114
  Transmission Date: 20100710
  Serious: Yes (Other)
  Sender: FDA-Public Use
  Company Number: PHHY2009MX52065

PATIENT
  Age: 6 Year
  Sex: Male

DRUGS (1)
  1. TEGRETOL [Suspect]
     Indication: EPILEPSY
     Dosage: 10ML (2G/100ML MG) DAILY
     Route: 048
     Dates: start: 20091118

REACTIONS (7)
  - CONVULSION [None]
  - DIARRHOEA [None]
  - GASTROINTESTINAL INFECTION [None]
  - NASOPHARYNGITIS [None]
  - PYREXIA [None]
  - TREMOR [None]
  - VOMITING [None]
